FAERS Safety Report 7737013-8 (Version None)
Quarter: 2011Q3

REPORT INFORMATION
  Report Type: 
  Country: None (occurrence: None)
  Receive Date: 20110908
  Receipt Date: 20110826
  Transmission Date: 20111222
  Serious: Yes (Hospitalization)
  Sender: FDA-Public Use
  Company Number: US-ELI_LILLY_AND_COMPANY-US201108008896

PATIENT
  Sex: Female

DRUGS (13)
  1. BACLOFEN [Concomitant]
  2. SINEMET [Concomitant]
     Dosage: UNK
  3. NEURONTIN [Concomitant]
  4. REQUIP [Concomitant]
  5. KLONOPIN [Concomitant]
  6. LEXAPRO [Concomitant]
  7. SYNTHROID [Concomitant]
  8. FORTEO [Suspect]
     Indication: OSTEOPENIA
     Dosage: 20 UG, QD
     Dates: start: 20100801
  9. PROVIGIL [Concomitant]
  10. PRILOSEC [Concomitant]
  11. AVONEX [Concomitant]
  12. ESTROGENIC SUBSTANCE [Concomitant]
  13. AMBIEN [Concomitant]

REACTIONS (3)
  - DRUG DOSE OMISSION [None]
  - TENDERNESS [None]
  - HOSPITALISATION [None]
